FAERS Safety Report 6377604-2 (Version None)
Quarter: 2009Q3

REPORT INFORMATION
  Report Type: 
  Country: None (occurrence: None)
  Receive Date: 20090925
  Receipt Date: 20090916
  Transmission Date: 20100115
  Serious: Yes (Other)
  Sender: FDA-Public Use
  Company Number: DE-TEVA-209841ISR

PATIENT
  Age: 83 Year
  Sex: Female
  Weight: 60 kg

DRUGS (1)
  1. LISINOPRIL [Suspect]
     Indication: CARDIAC FAILURE
     Route: 048
     Dates: start: 20090608, end: 20090622

REACTIONS (2)
  - CHOLANGITIS [None]
  - HEPATITIS [None]
